FAERS Safety Report 25241701 (Version 2)
Quarter: 2025Q4

REPORT INFORMATION
  Report Type: Report from Study
  Country: US (occurrence: US)
  Receive Date: 20250426
  Receipt Date: 20251212
  Transmission Date: 20260117
  Serious: No
  Sender: MERCK SHARP & DOHME LLC
  Company Number: US-009507513-2279974

PATIENT
  Age: 75 Year
  Sex: Female

DRUGS (1)
  1. KEYTRUDA [Suspect]
     Active Substance: PEMBROLIZUMAB
     Dosage: STRENGTH: 50 MG
     Route: 042
     Dates: start: 20241105

REACTIONS (2)
  - Malaise [Unknown]
  - Hospice care [Unknown]

NARRATIVE: CASE EVENT DATE: 20250317
